FAERS Safety Report 8038201-6 (Version None)
Quarter: 2012Q1

REPORT INFORMATION
  Report Type: 
  Country: None (occurrence: None)
  Receive Date: 20120111
  Receipt Date: 20111207
  Transmission Date: 20120608
  Serious: No
  Sender: FDA-Public Use
  Company Number: US-AMGEN-USASP2011046653

PATIENT
  Age: 43 Year
  Sex: Female

DRUGS (6)
  1. TACLONEX [Concomitant]
     Indication: PSORIASIS
     Route: 061
  2. CLONAZEPAM [Concomitant]
     Indication: ANXIETY
  3. ENBREL [Suspect]
     Indication: PSORIASIS
     Dosage: 50 MG, 2 TIMES/WK
     Dates: start: 20110421, end: 20110826
  4. CLOBEX [Concomitant]
     Indication: PSORIASIS
     Route: 061
  5. NIZORELLE [Concomitant]
     Indication: PSORIASIS
     Route: 061
  6. TRAMADOL HCL [Concomitant]
     Indication: INSOMNIA
     Dosage: 200 UNK, UNK
     Route: 048

REACTIONS (5)
  - DIARRHOEA [None]
  - HEPATITIS [None]
  - NAUSEA [None]
  - VOMITING [None]
  - HEPATIC ENZYME INCREASED [None]
